FAERS Safety Report 18557290 (Version 2)
Quarter: 2020Q4

REPORT INFORMATION
  Report Type: Report from Study
  Country: KR (occurrence: KR)
  Receive Date: 20201129
  Receipt Date: 20201209
  Transmission Date: 20210114
  Serious: Yes (Life-Threatening, Hospitalization, Other)
  Sender: FDA-Public Use
  Company Number: KR-CELLTRION INC.-2020KR031495

PATIENT

DRUGS (22)
  1. TELMITREN [Concomitant]
     Indication: HYPERTENSION
     Dosage: 1 DOSAGE FORM, QD
     Route: 048
     Dates: start: 2010
  2. TAMSULOSIN [Concomitant]
     Active Substance: TAMSULOSIN
     Indication: TRANSITIONAL CELL CANCER OF THE RENAL PELVIS AND URETER
     Dosage: 2 DOSAGE FORM, QD
     Route: 048
     Dates: start: 20180803
  3. FENTANYL. [Concomitant]
     Active Substance: FENTANYL
     Dosage: 74 MICROGRAM, EVERY 3 DAYS
     Route: 062
     Dates: start: 20201112
  4. DEXAMETHASONE. [Concomitant]
     Active Substance: DEXAMETHASONE
     Indication: ALLERGY PROPHYLAXIS
     Dosage: 20 MILLIGRAM, EVERY 3 WEEKS
     Route: 042
     Dates: start: 20201104
  5. FAMOTIDINE. [Concomitant]
     Active Substance: FAMOTIDINE
     Indication: PROPHYLAXIS AGAINST GASTROINTESTINAL ULCER
     Dosage: 20 MILLIGRAM, EVERY 3 WEEKS
     Route: 042
     Dates: start: 20201104
  6. ABSTRAL SUBLINGUAL [Concomitant]
     Indication: ABDOMINAL PAIN
     Dosage: 1 DOSAGE FORM, PRN
     Route: 060
     Dates: start: 20201110, end: 20201119
  7. FUROCEMIDE [Concomitant]
     Indication: HYPERVOLAEMIA
     Dosage: 10 MG, PRN
     Route: 042
     Dates: start: 20201113, end: 20201119
  8. PENIRAMIN [Concomitant]
     Indication: ALLERGY PROPHYLAXIS
     Dosage: 1 AMPLE EVERY 3 WEEKS
     Route: 042
     Dates: start: 20201104
  9. SOMETO [Concomitant]
     Indication: TRANSITIONAL CELL CANCER OF THE RENAL PELVIS AND URETER
     Dosage: 320 MG, QD
     Route: 048
     Dates: start: 20180803
  10. OXYCODONE [Concomitant]
     Active Substance: OXYCODONE
     Indication: ABDOMINAL PAIN
     Dosage: 1 DOSAGE FORM, PRN
     Route: 048
     Dates: start: 20201109, end: 20201110
  11. PACLITAXEL. [Suspect]
     Active Substance: PACLITAXEL
     Indication: TRANSITIONAL CELL CARCINOMA
     Dosage: UNK
     Route: 042
     Dates: start: 20201104
  12. WINUF PERI [Concomitant]
     Active Substance: AMINO ACIDS\DEXTROSE\ELECTROLYTES NOS\SOYBEAN OIL\VITAMINS
     Indication: PROPHYLAXIS
     Dosage: 1085 MILLILITER, QD
     Route: 042
     Dates: start: 20201110, end: 20201118
  13. MORPHINE [Concomitant]
     Active Substance: MORPHINE
     Indication: ABDOMINAL PAIN
     Dosage: 5 MG, PRN
     Route: 042
     Dates: start: 20201109, end: 20201115
  14. ULTRACET [Concomitant]
     Active Substance: ACETAMINOPHEN\TRAMADOL HYDROCHLORIDE
     Indication: ABDOMINAL PAIN
     Dosage: 1 DOSAGE FORM, TID
     Route: 048
     Dates: start: 20201104
  15. K-CONTIN [Concomitant]
     Indication: HYPOKALAEMIA
     Dosage: 1 DOSAGE FORM, PRN
     Route: 048
     Dates: start: 20201110, end: 20201119
  16. NYSTATIN. [Concomitant]
     Active Substance: NYSTATIN
     Indication: INFECTION PROPHYLAXIS
     Dosage: 4 ML, TID
     Route: 048
     Dates: start: 20201110
  17. VIMOVO [Concomitant]
     Active Substance: ESOMEPRAZOLE MAGNESIUM\NAPROXEN
     Indication: ABDOMINAL PAIN
     Dosage: 1 DOSAGE FORM, BID
     Route: 048
     Dates: start: 20201109
  18. FENTANYL. [Concomitant]
     Active Substance: FENTANYL
     Indication: ABDOMINAL PAIN
     Dosage: 24 MICROGRAM, EVERY 3 DAYS
     Route: 062
     Dates: start: 20201110, end: 20201111
  19. 20% ALBUMIN [Concomitant]
     Indication: HYPOALBUMINAEMIA
     Dosage: 100 ML, PRN
     Route: 042
     Dates: start: 20201111, end: 20201116
  20. FUROCEMIDE [Concomitant]
     Indication: PROPHYLAXIS
  21. HERZUMA [Suspect]
     Active Substance: TRASTUZUMAB-PKRB
     Indication: TRANSITIONAL CELL CARCINOMA
     Dosage: 592 MG EVERY CYCLE Q3WEEKS (CYCLE 1 DAY 1)
     Route: 042
     Dates: start: 20201104
  22. WINUF PERI [Concomitant]
     Active Substance: AMINO ACIDS\DEXTROSE\ELECTROLYTES NOS\SOYBEAN OIL\VITAMINS
     Indication: MALNUTRITION

REACTIONS (4)
  - Loss of consciousness [Recovered/Resolved]
  - Febrile neutropenia [Recovered/Resolved]
  - Hypotension [Recovered/Resolved]
  - Off label use [Unknown]

NARRATIVE: CASE EVENT DATE: 20201109
